FAERS Safety Report 18304188 (Version 1)
Quarter: 2020Q3

REPORT INFORMATION
  Report Type: Report from Study
  Country: US (occurrence: US)
  Receive Date: 20200924
  Receipt Date: 20200924
  Transmission Date: 20201103
  Serious: Yes (Other)
  Sender: FDA-Public Use
  Company Number: US-BAUSCH-BL-2020-025259

PATIENT
  Age: 52 Year
  Sex: Female

DRUGS (2)
  1. XIFAXAN [Suspect]
     Active Substance: RIFAXIMIN
     Indication: HEPATIC ENCEPHALOPATHY
     Dosage: TOOK TWICE DAILY FOR THE FIRST WEEK
     Route: 048
  2. XIFAXAN [Suspect]
     Active Substance: RIFAXIMIN
     Dosage: ONCE DAILY AFTERWARDS
     Route: 048

REACTIONS (4)
  - Chronic hepatic failure [Unknown]
  - Product dose omission in error [Unknown]
  - Eating disorder [Unknown]
  - Inappropriate schedule of product administration [Unknown]
